FAERS Safety Report 10402684 (Version 1)
Quarter: 2014Q3

REPORT INFORMATION
  Report Type: Spontaneous
  Country: US (occurrence: None)
  Receive Date: 20140821
  Receipt Date: 20140821
  Transmission Date: 20150326
  Serious: Yes (Other)
  Sender: FDA-Public Use
  Company Number: None

PATIENT
  Age: 86 Year
  Sex: Female

DRUGS (1)
  1. CAPECITABINE 500 MG TABLET TAKE 1 DAILY [Suspect]
     Active Substance: CAPECITABINE
     Dosage: 500 MG  TAKE 1 DAILY  ORAL?11/3/11  BRAND
     Route: 048
     Dates: start: 20111103

REACTIONS (4)
  - Insomnia [None]
  - Dyspnoea [None]
  - Palpitations [None]
  - Anxiety [None]

NARRATIVE: CASE EVENT DATE: 20140818
